FAERS Safety Report 8077191-7 (Version None)
Quarter: 2012Q1

REPORT INFORMATION
  Report Type: 
  Country: None (occurrence: None)
  Receive Date: 20120127
  Receipt Date: 20120116
  Transmission Date: 20120608
  Serious: Yes (Death)
  Sender: FDA-Public Use
  Company Number: US-BAXTER-2012BH000864

PATIENT
  Sex: Male

DRUGS (1)
  1. DIANEAL [Suspect]
     Indication: PERITONEAL DIALYSIS
     Route: 033
     Dates: start: 20110201, end: 20111201

REACTIONS (4)
  - CARDIAC DISORDER [None]
  - LUNG NEOPLASM MALIGNANT [None]
  - METASTASIS [None]
  - RENAL FAILURE [None]
